FAERS Safety Report 7514519-8 (Version None)
Quarter: 2011Q2

REPORT INFORMATION
  Report Type: 
  Country: None (occurrence: None)
  Receive Date: 20110601
  Receipt Date: 20101206
  Transmission Date: 20111010
  Serious: No
  Sender: FDA-Public Use
  Company Number: US-BAYER-2010-004796

PATIENT
  Age: 45 Year
  Sex: Male
  Weight: 126.98 kg

DRUGS (7)
  1. ULTRAVIST 150 [Suspect]
     Indication: PERIPHERAL VASCULAR DISORDER
     Dosage: 150 ML, ONCE
     Route: 042
     Dates: start: 20101206, end: 20101206
  2. METHOCARBAMOL [Concomitant]
     Indication: PRODUCT USED FOR UNKNOWN INDICATION
  3. LISINOPRIL [Concomitant]
     Indication: PRODUCT USED FOR UNKNOWN INDICATION
     Dosage: UNK
  4. PRAVASTATIN [Concomitant]
     Indication: PRODUCT USED FOR UNKNOWN INDICATION
     Dosage: UNK
  5. NEURONTIN [Concomitant]
     Indication: PRODUCT USED FOR UNKNOWN INDICATION
     Dosage: UNK
  6. HYDROCHLOROTHIAZIDE [Concomitant]
     Indication: PRODUCT USED FOR UNKNOWN INDICATION
     Dosage: UNK
  7. ULTRAVIST 150 [Suspect]
     Indication: DIAGNOSTIC PROCEDURE
     Dosage: 150 ML, ONCE
     Route: 042
     Dates: start: 20101206, end: 20101206

REACTIONS (2)
  - PRURITUS [None]
  - URTICARIA [None]
